FAERS Safety Report 8762615 (Version 1)
Quarter: 2012Q4

REPORT INFORMATION
  Report Type: 
  Country: BR (occurrence: BR)
  Receive Date: 20120830
  Receipt Date: 20120830
  Transmission Date: 20130627
  Serious: Yes (Death, Other)
  Sender: FDA-Public Use
  Company Number: BR-ROCHE-1008986

PATIENT
  Age: 34 Year
  Sex: Female
  Weight: 56 kg

DRUGS (3)
  1. CEFTRIAXONE SODIUM [Suspect]
     Indication: PYELONEPHRITIS
     Dosage: suspended after 15 days
     Route: 030
  2. CEFTRIAXONE SODIUM [Suspect]
     Indication: TRACHEOBRONCHITIS
  3. DIPYRONE [Suspect]
     Indication: PRODUCT USED FOR UNKNOWN INDICATION

REACTIONS (4)
  - Bronchopulmonary aspergillosis [Fatal]
  - Agranulocytosis [Unknown]
  - Oligohydramnios [Unknown]
  - Exposure during pregnancy [Unknown]
